FAERS Safety Report 13267312 (Version 1)
Quarter: 2017Q1

REPORT INFORMATION
  Report Type: Spontaneous
  Country: SE (occurrence: SE)
  Receive Date: 20170224
  Receipt Date: 20170224
  Transmission Date: 20170428
  Serious: Yes (Hospitalization)
  Sender: FDA-Public Use
  Company Number: SE-CIPLA LTD.-2017SE02038

PATIENT

DRUGS (2)
  1. TAXOTERE [Interacting]
     Active Substance: DOCETAXEL
     Dosage: UNK
  2. ATORVASTATIN [Suspect]
     Active Substance: ATORVASTATIN
     Dosage: UNK
     Route: 048

REACTIONS (2)
  - Myositis [Recovered/Resolved with Sequelae]
  - Drug interaction [Unknown]
